FAERS Safety Report 18696745 (Version 2)
Quarter: 2021Q1

REPORT INFORMATION
  Report Type: Spontaneous
  Country: RU (occurrence: RU)
  Receive Date: 20210104
  Receipt Date: 20210115
  Transmission Date: 20210419
  Serious: Yes (Hospitalization)
  Sender: FDA-Public Use
  Company Number: NVSC2020RU347571

PATIENT
  Age: 63 Year
  Sex: Male

DRUGS (11)
  1. CEFTRIAXONE. [Concomitant]
     Active Substance: CEFTRIAXONE
     Indication: PERTUSSIS
     Dosage: 1 MG, BID
     Route: 030
  2. THIORIDAZINE [Concomitant]
     Active Substance: THIORIDAZINE
     Indication: PERTUSSIS
     Dosage: 25 MG, BID
     Route: 065
  3. PAPAVERINE [Concomitant]
     Active Substance: PAPAVERINE
     Indication: PERTUSSIS
     Dosage: UNK
     Route: 065
  4. PHENOBARBITAL. [Concomitant]
     Active Substance: PHENOBARBITAL
     Indication: PERTUSSIS
     Dosage: UNK
     Route: 065
  5. BROMHEXINE [Concomitant]
     Active Substance: BROMHEXINE
     Indication: PERTUSSIS
     Dosage: 2 DF, TID, 2 TABLETS
     Route: 065
  6. OXYGEN. [Concomitant]
     Active Substance: OXYGEN
     Indication: PERTUSSIS
     Dosage: HUMIDIFIED
     Route: 055
  7. ACC [Suspect]
     Active Substance: ACETYLCYSTEINE
     Indication: BACTERIAL INFECTION
     Dosage: UNK
     Route: 065
  8. AMOKSIKLAV [Suspect]
     Active Substance: AMOXICILLIN\CLAVULANATE POTASSIUM
     Indication: BACTERIAL INFECTION
     Dosage: UNK
     Route: 065
  9. CAFFEINE. [Concomitant]
     Active Substance: CAFFEINE
     Indication: PERTUSSIS
     Dosage: UNK
     Route: 065
  10. PAGLUFERAL 3 [Concomitant]
     Indication: PERTUSSIS
     Dosage: UNK
     Route: 065
  11. CALCIUM GLUCONATE. [Concomitant]
     Active Substance: CALCIUM GLUCONATE
     Indication: PERTUSSIS
     Dosage: UNK
     Route: 065

REACTIONS (3)
  - Loss of consciousness [Unknown]
  - Cough [Unknown]
  - Product use in unapproved indication [Unknown]
